FAERS Safety Report 7438161-2 (Version None)
Quarter: 2011Q2

REPORT INFORMATION
  Report Type: 
  Country: None (occurrence: None)
  Receive Date: 20110419
  Receipt Date: 20110406
  Transmission Date: 20111010
  Serious: Yes (Death)
  Sender: FDA-Public Use
  Company Number: 030677

PATIENT
  Sex: Female
  Weight: 82 kg

DRUGS (1)
  1. CIMZIA [Suspect]
     Indication: RHEUMATOID ARTHRITIS
     Dosage: (200 MG 1X/2 WEEKS SUBCUTANEOUS)
     Route: 058
     Dates: start: 20101122, end: 20110224

REACTIONS (1)
  - SEPSIS [None]
